FAERS Safety Report 14257211 (Version 4)
Quarter: 2018Q2

REPORT INFORMATION
  Report Type: Report from Study
  Country: DE (occurrence: DE)
  Receive Date: 20171206
  Receipt Date: 20180614
  Transmission Date: 20180711
  Serious: Yes (Hospitalization, Other)
  Sender: FDA-Public Use
  Company Number: DE-BRISTOL-MYERS SQUIBB COMPANY-BMS-2017-061237

PATIENT
  Age: 78 Year
  Sex: Male

DRUGS (5)
  1. NIVOLUMAB [Suspect]
     Active Substance: NIVOLUMAB
     Indication: PRODUCT USED FOR UNKNOWN INDICATION
     Dosage: 87 MG, Q3WK
     Route: 042
     Dates: start: 20170830
  2. IPILIMUMAB [Suspect]
     Active Substance: IPILIMUMAB
     Indication: PRODUCT USED FOR UNKNOWN INDICATION
     Dosage: 260 MG, Q3WK
     Route: 042
     Dates: start: 20170830
  3. NIVOLUMAB [Suspect]
     Active Substance: NIVOLUMAB
     Indication: MALIGNANT MELANOMA
     Dosage: 90 MG, Q3WK
     Route: 042
     Dates: start: 20170626, end: 20170626
  4. NIVOLUMAB [Suspect]
     Active Substance: NIVOLUMAB
     Indication: PRODUCT USED FOR UNKNOWN INDICATION
     Dosage: 85 MG, Q3WK
     Route: 042
     Dates: start: 20170816, end: 20170816
  5. IPILIMUMAB [Suspect]
     Active Substance: IPILIMUMAB
     Indication: MALIGNANT MELANOMA
     Dosage: 270 MG, Q3WK
     Route: 042
     Dates: start: 20170626

REACTIONS (10)
  - Metastases to central nervous system [Unknown]
  - Pyrexia [Recovered/Resolved]
  - Decreased appetite [Recovered/Resolved]
  - Pneumonitis [Recovered/Resolved]
  - Autoimmune colitis [Recovered/Resolved]
  - Dyspnoea exertional [Recovered/Resolved]
  - Malaise [Recovered/Resolved]
  - Enteritis [Recovering/Resolving]
  - Transient ischaemic attack [Not Recovered/Not Resolved]
  - Fatigue [Recovered/Resolved]

NARRATIVE: CASE EVENT DATE: 20170706
